FAERS Safety Report 23406484 (Version 1)
Quarter: 2024Q1

REPORT INFORMATION
  Report Type: Spontaneous
  Country: US (occurrence: US)
  Receive Date: 20240116
  Receipt Date: 20240116
  Transmission Date: 20240410
  Serious: No
  Sender: FDA-Public Use
  Company Number: US-Emergent Biosolutions-23000557

PATIENT
  Age: 29 Year
  Sex: Male

DRUGS (5)
  1. BRINCIDOFOVIR [Suspect]
     Active Substance: BRINCIDOFOVIR
     Indication: Monkeypox
     Dosage: UNK
     Route: 065
  2. CNJ-016 [Suspect]
     Active Substance: HUMAN VACCINIA VIRUS IMMUNE GLOBULIN
     Indication: Monkeypox
     Dosage: UNK
     Route: 065
  3. TECOVIRIMAT [Concomitant]
     Active Substance: TECOVIRIMAT
     Indication: Monkeypox
     Dosage: COMPLETED A COURSE
     Route: 065
  4. TECOVIRIMAT [Concomitant]
     Active Substance: TECOVIRIMAT
     Dosage: SECOND ROUND
     Route: 065
  5. CIDOFOVIR [Concomitant]
     Active Substance: CIDOFOVIR
     Indication: Monkeypox
     Dosage: UNK
     Route: 065

REACTIONS (1)
  - Off label use [Unknown]
